FAERS Safety Report 5549825-X (Version None)
Quarter: 2007Q4

REPORT INFORMATION
  Report Type: 
  Country: None (occurrence: None)
  Receive Date: 20071212
  Receipt Date: 20071210
  Transmission Date: 20080405
  Serious: Yes (Death, Other)
  Sender: FDA-Public Use
  Company Number: IT-BRISTOL-MYERS SQUIBB COMPANY-14007488

PATIENT
  Sex: Male

DRUGS (4)
  1. DIDANOSINE [Suspect]
     Indication: HIV INFECTION
     Dosage: DURING WEEK 2 OF SEQUENTIAL THERAPY
  2. ACYCLOVIR CAPS [Suspect]
     Indication: HIV INFECTION
     Dosage: DURING WEEK 1
  3. ZIDOVUDINE [Suspect]
     Indication: HIV INFECTION
     Dosage: DURING WEEK 1 OF SEQUENTIAL THERAPY
  4. ZALCITABINE [Suspect]
     Indication: HIV INFECTION
     Dosage: DURING WEEK 3 OF SEQUENTIAL THERAPY

REACTIONS (1)
  - KAPOSI'S SARCOMA [None]
